FAERS Safety Report 4899851-9 (Version None)
Quarter: 2006Q1

REPORT INFORMATION
  Report Type: 
  Country: None (occurrence: None)
  Receive Date: 20060120
  Receipt Date: 20050519
  Transmission Date: 20060701
  Serious: No
  Sender: FDA-Public Use
  Company Number: 405473

PATIENT
  Age: 44 Year
  Sex: Female
  Weight: 55.2 kg

DRUGS (2)
  1. VESANOID [Suspect]
     Indication: ACUTE LEUKAEMIA
     Dosage: 30 MG 2 PER DAY ORAL
     Route: 048
     Dates: start: 20050511, end: 20050519
  2. VFEND [Concomitant]

REACTIONS (5)
  - BODY TEMPERATURE INCREASED [None]
  - FUNGAL INFECTION [None]
  - HEADACHE [None]
  - LIVER FUNCTION TEST ABNORMAL [None]
  - RETINOIC ACID SYNDROME [None]
